FAERS Safety Report 24833930 (Version 1)
Quarter: 2025Q1

REPORT INFORMATION
  Report Type: Spontaneous
  Country: US (occurrence: US)
  Receive Date: 20250112
  Receipt Date: 20250112
  Transmission Date: 20250409
  Serious: No
  Sender: JOHNSON AND JOHNSON
  Company Number: US-JNJFOC-20241262591

PATIENT
  Age: 76 Year
  Sex: Male

DRUGS (2)
  1. AKEEGA [Suspect]
     Active Substance: ABIRATERONE ACETATE\NIRAPARIB TOSYLATE MONOHYDRATE
     Indication: Prostate cancer metastatic
     Dosage: 200/1000 MG
     Route: 048
     Dates: start: 20241121
  2. AKEEGA [Suspect]
     Active Substance: ABIRATERONE ACETATE\NIRAPARIB TOSYLATE MONOHYDRATE
     Dosage: 100/500 MG
     Route: 048
     Dates: start: 20241203

REACTIONS (1)
  - Ageusia [Not Recovered/Not Resolved]

NARRATIVE: CASE EVENT DATE: 20241121
